FAERS Safety Report 7493494-9 (Version None)
Quarter: 2011Q2

REPORT INFORMATION
  Report Type: 
  Country: None (occurrence: None)
  Receive Date: 20110519
  Receipt Date: 20110519
  Transmission Date: 20111010
  Serious: Yes (Hospitalization)
  Sender: FDA-Public Use
  Company Number: None

PATIENT
  Sex: Female
  Weight: 80.3 kg

DRUGS (2)
  1. METHOTREXATE [Suspect]
     Dosage: 184 MG
  2. VINCRISTINE SULFATE [Suspect]
     Dosage: 2 MG

REACTIONS (3)
  - BACTERAEMIA [None]
  - ENTEROBACTER INFECTION [None]
  - STAPHYLOCOCCAL INFECTION [None]
